FAERS Safety Report 11328725 (Version 2)
Quarter: 2015Q4

REPORT INFORMATION
  Report Type: Spontaneous
  Country: US (occurrence: US)
  Receive Date: 20150731
  Receipt Date: 20151006
  Transmission Date: 20160304
  Serious: No
  Sender: FDA-Public Use
  Company Number: US-PFIZER INC-2015254163

PATIENT
  Age: 70 Year
  Sex: Female

DRUGS (9)
  1. CITRACAL-D [Concomitant]
     Dosage: UNK
  2. FISH OIL [Concomitant]
     Active Substance: FISH OIL
  3. XELJANZ [Suspect]
     Active Substance: TOFACITINIB CITRATE
     Dosage: 10 MG, 2X/DAY
     Dates: start: 20140915
  4. SLOW-MAG [Concomitant]
     Active Substance: MAGNESIUM CHLORIDE
  5. FOLIC ACID. [Concomitant]
     Active Substance: FOLIC ACID
  6. PREDNISONE. [Concomitant]
     Active Substance: PREDNISONE
     Dosage: 5 MG, DAILY
  7. XELJANZ [Suspect]
     Active Substance: TOFACITINIB CITRATE
     Dosage: 1 DF, DAILY (ONE PILL DAILY) (FOR ONE WEEK)
     Dates: start: 201504
  8. VITAMIN C [Concomitant]
     Active Substance: ASCORBIC ACID
  9. XELJANZ [Suspect]
     Active Substance: TOFACITINIB CITRATE
     Indication: RHEUMATOID ARTHRITIS
     Dosage: 5 MG, UNK

REACTIONS (17)
  - Pyrexia [Unknown]
  - Malabsorption [Recovered/Resolved]
  - Upper respiratory tract infection [Recovered/Resolved]
  - Decreased appetite [Unknown]
  - Hearing impaired [Unknown]
  - Blood thyroid stimulating hormone abnormal [Recovered/Resolved]
  - Dyspepsia [Unknown]
  - Malaise [Recovered/Resolved]
  - Depression [Unknown]
  - Dehydration [Unknown]
  - Anger [Unknown]
  - Headache [Unknown]
  - Vomiting [Unknown]
  - Chills [Unknown]
  - Diarrhoea [Unknown]
  - Fatigue [Unknown]
  - Tremor [Unknown]

NARRATIVE: CASE EVENT DATE: 2014
